FAERS Safety Report 14000908 (Version 1)
Quarter: 2017Q3

REPORT INFORMATION
  Report Type: Spontaneous
  Country: LK (occurrence: LK)
  Receive Date: 20170922
  Receipt Date: 20170922
  Transmission Date: 20171128
  Serious: Yes (Hospitalization, Other)
  Sender: FDA-Public Use
  Company Number: LK-IMPAX LABORATORIES, INC-2017-IPXL-02719

PATIENT
  Age: 21 Year
  Sex: Male

DRUGS (3)
  1. CHLORPHENIRAMINE. [Concomitant]
     Active Substance: CHLORPHENIRAMINE
     Indication: ANAPHYLACTIC REACTION
     Dosage: 10 MG, UNK
     Route: 042
  2. ADRENACLICK [Suspect]
     Active Substance: EPINEPHRINE
     Indication: ANAPHYLACTIC REACTION
     Dosage: 0.5 ML, (1:1000 SOLUTION)
     Route: 030
  3. HYDROCORTISONE. [Concomitant]
     Active Substance: HYDROCORTISONE
     Indication: ANAPHYLACTIC REACTION
     Dosage: 200 MG, UNK
     Route: 042

REACTIONS (1)
  - Acute myocardial infarction [Recovered/Resolved]
